FAERS Safety Report 14609947 (Version 1)
Quarter: 2018Q1

REPORT INFORMATION
  Report Type: Spontaneous
  Country: ZA (occurrence: ZA)
  Receive Date: 20180307
  Receipt Date: 20180307
  Transmission Date: 20180509
  Serious: Yes (Hospitalization)
  Sender: FDA-Public Use
  Company Number: ZA-PFIZER INC-2018089000

PATIENT
  Age: 69 Year
  Sex: Male

DRUGS (4)
  1. CHELA FER [Suspect]
     Active Substance: FERROUS BISGLYCINATE\FOLIC ACID
     Dosage: 15 MG, UNK
  2. ULTRACET [Suspect]
     Active Substance: ACETAMINOPHEN\TRAMADOL HYDROCHLORIDE
     Dosage: UNK
  3. FASTUM [Concomitant]
     Active Substance: KETOPROFEN
     Dosage: 2.5 G, UNK
  4. ASPAVOR [Suspect]
     Active Substance: ATORVASTATIN
     Dosage: 20 MG, UNK

REACTIONS (1)
  - Renal disorder [Unknown]
